FAERS Safety Report 8082787-2 (Version None)
Quarter: 2012Q1

REPORT INFORMATION
  Report Type: 
  Country: None (occurrence: None)
  Receive Date: 20120127
  Receipt Date: 20110214
  Transmission Date: 20120608
  Serious: No
  Sender: FDA-Public Use
  Company Number: US-ABBOTT-11P-163-0705000-00

PATIENT
  Sex: Female
  Weight: 68.1 kg

DRUGS (5)
  1. PERCOCET [Concomitant]
     Indication: PAIN
     Dates: start: 20110210
  2. HUMIRA [Suspect]
     Indication: CROHN'S DISEASE
     Dosage: 1ST LOADING DOSE, ONCE
     Route: 058
     Dates: start: 20101229, end: 20101229
  3. AMBIEN [Concomitant]
     Indication: PRODUCT USED FOR UNKNOWN INDICATION
  4. HUMIRA [Suspect]
     Route: 058
     Dates: start: 20110211
  5. SEROQUEL [Concomitant]
     Indication: PRODUCT USED FOR UNKNOWN INDICATION

REACTIONS (4)
  - ABDOMINAL PAIN [None]
  - RECTAL HAEMORRHAGE [None]
  - CROHN'S DISEASE [None]
  - NAUSEA [None]
